FAERS Safety Report 25504005 (Version 1)
Quarter: 2025Q3

REPORT INFORMATION
  Report Type: Report from Study
  Country: CH (occurrence: CH)
  Receive Date: 20250702
  Receipt Date: 20250702
  Transmission Date: 20251021
  Serious: Yes (Other)
  Sender: MYLAN
  Company Number: CH-MYLANLABS-2025M1055016

PATIENT

DRUGS (8)
  1. SUNITINIB [Suspect]
     Active Substance: SUNITINIB
     Indication: Phaeochromocytoma
  2. SUNITINIB [Suspect]
     Active Substance: SUNITINIB
     Indication: Metastasis
  3. SUNITINIB [Suspect]
     Active Substance: SUNITINIB
     Route: 065
  4. SUNITINIB [Suspect]
     Active Substance: SUNITINIB
     Route: 065
  5. SUNITINIB [Suspect]
     Active Substance: SUNITINIB
  6. SUNITINIB [Suspect]
     Active Substance: SUNITINIB
  7. SUNITINIB [Suspect]
     Active Substance: SUNITINIB
     Route: 065
  8. SUNITINIB [Suspect]
     Active Substance: SUNITINIB
     Route: 065

REACTIONS (3)
  - Thrombocytopenia [Unknown]
  - Dyspnoea [Unknown]
  - Off label use [Unknown]
